FAERS Safety Report 19524957 (Version 1)
Quarter: 2021Q3

REPORT INFORMATION
  Report Type: Spontaneous
  Country: US (occurrence: US)
  Receive Date: 20210713
  Receipt Date: 20210713
  Transmission Date: 20211014
  Serious: Yes (Hospitalization, Disabling)
  Sender: FDA-Public Use
  Company Number: None

PATIENT
  Age: 59 Year
  Sex: Female
  Weight: 62 kg

DRUGS (2)
  1. THYROID MEDICATION [Concomitant]
     Active Substance: UNSPECIFIED INGREDIENT
  2. PRP (PLATELET RICH PLASMA [Suspect]
     Active Substance: PLATELET RICH PLASMA
     Indication: INFLAMMATION
     Dates: start: 20210415

REACTIONS (11)
  - Constipation [None]
  - Fatigue [None]
  - Pain [None]
  - Vomiting [None]
  - Burning sensation [None]
  - Feeling cold [None]
  - Nausea [None]
  - Heart rate increased [None]
  - Weight increased [None]
  - Oedema [None]
  - Hypertension [None]

NARRATIVE: CASE EVENT DATE: 20210425
